FAERS Safety Report 20623573 (Version 1)
Quarter: 2022Q1

REPORT INFORMATION
  Report Type: Spontaneous
  Country: US (occurrence: None)
  Receive Date: 20220322
  Receipt Date: 20220322
  Transmission Date: 20220423
  Serious: No
  Sender: FDA-Public Use
  Company Number: None

PATIENT

DRUGS (2)
  1. TRAZODONE HCL [Suspect]
     Active Substance: TRAZODONE HYDROCHLORIDE
     Route: 048
  2. TRAMADOL [Suspect]
     Active Substance: TRAMADOL
     Route: 048

REACTIONS (4)
  - Product name confusion [None]
  - Product name confusion [None]
  - Product dispensing error [None]
  - Wrong product administered [None]
